FAERS Safety Report 9636061 (Version 1)
Quarter: 2013Q4

REPORT INFORMATION
  Report Type: Spontaneous
  Country: US (occurrence: US)
  Receive Date: 20131021
  Receipt Date: 20131021
  Transmission Date: 20140711
  Serious: Yes (Life-Threatening, Hospitalization)
  Sender: FDA-Public Use
  Company Number: US-MYLANLABS-2013S1022833

PATIENT
  Age: 21 Year
  Sex: Male

DRUGS (3)
  1. CITALOPRAM [Suspect]
     Indication: OVERDOSE
     Dosage: POTENTIAL MAXIMUM OF 11.6G; 40MG DOSAGE FORM
     Route: 048
  2. OLANZAPINE [Suspect]
     Indication: OVERDOSE
     Dosage: POTENTIAL MAXIMUM OF 600MG; 10MG DOSAGE FORM
     Route: 048
  3. CLONAZEPAM [Suspect]
     Indication: OVERDOSE
     Dosage: POTENTIAL MAXIMUM OF 5MG; 0.5MG DOSAGE FORM
     Route: 048

REACTIONS (7)
  - Overdose [Recovering/Resolving]
  - Convulsion [Recovered/Resolved]
  - Cardiotoxicity [Recovering/Resolving]
  - Unresponsive to stimuli [Recovered/Resolved]
  - Hypotension [Recovering/Resolving]
  - Bradycardia [Recovering/Resolving]
  - Pneumonia aspiration [Unknown]
